FAERS Safety Report 7128049-9 (Version None)
Quarter: 2010Q4

REPORT INFORMATION
  Report Type: 
  Country: None (occurrence: None)
  Receive Date: 20101130
  Receipt Date: 20101116
  Transmission Date: 20110411
  Serious: Yes (Other)
  Sender: FDA-Public Use
  Company Number: US-ELI_LILLY_AND_COMPANY-US201011005495

PATIENT
  Sex: Female

DRUGS (16)
  1. FORTEO [Suspect]
     Indication: OSTEOPOROSIS
     Dosage: 20 UG, DAILY (1/D)
     Dates: start: 20100423
  2. ALPRAZOLAM [Concomitant]
  3. PRILOSEC [Concomitant]
  4. FUROSEMIDE [Concomitant]
  5. KLOR-CON [Concomitant]
     Dosage: UNK, 2/D
  6. LISINOPRIL [Concomitant]
  7. ASCORBIC ACID [Concomitant]
     Dosage: UNK, 2/D
  8. VITAMIN D [Concomitant]
     Dosage: UNK, DAILY (1/D)
  9. OXYCODONE HCL [Concomitant]
  10. ASPIRIN [Concomitant]
  11. STOOL SOFTENER [Concomitant]
  12. EFFEXOR [Concomitant]
  13. VITAMIN B [Concomitant]
     Dosage: 250 MG, UNK
  14. CALCIUM WITH VITAMIN D [Concomitant]
     Dosage: UNK, 2/D
  15. OXYGEN [Concomitant]
     Dosage: 2 LITER, UNK
  16. DILTIAZEM [Concomitant]

REACTIONS (1)
  - PULMONARY MASS [None]
